FAERS Safety Report 21734282 (Version 1)
Quarter: 2022Q4

REPORT INFORMATION
  Report Type: Report from Study
  Country: US (occurrence: US)
  Receive Date: 20221215
  Receipt Date: 20221215
  Transmission Date: 20230113
  Serious: No
  Sender: FDA-Public Use
  Company Number: US-ABBVIE-4199371

PATIENT
  Sex: Female

DRUGS (1)
  1. HUMIRA [Suspect]
     Active Substance: ADALIMUMAB
     Indication: Crohn^s disease
     Route: 058

REACTIONS (6)
  - Ear, nose and throat disorder [Unknown]
  - Headache [Unknown]
  - Nasal congestion [Unknown]
  - Myalgia [Unknown]
  - Oropharyngeal pain [Unknown]
  - Cough [Unknown]
